FAERS Safety Report 10279382 (Version 3)
Quarter: 2014Q3

REPORT INFORMATION
  Report Type: Spontaneous
  Country: CH (occurrence: CH)
  Receive Date: 20140707
  Receipt Date: 20140711
  Transmission Date: 20150326
  Serious: Yes (Other)
  Sender: FDA-Public Use
  Company Number: PHHY2014CH079768

PATIENT
  Age: 47 Year
  Sex: Male

DRUGS (3)
  1. CALPEROS D3 [Concomitant]
     Active Substance: CALCIUM CARBONATE\CHOLECALCIFEROL
     Dosage: UNK
  2. ACLASTA [Suspect]
     Active Substance: ZOLEDRONIC ACID
     Indication: OSTEOPOROSIS
     Dosage: UNK UKN, ONCE
     Route: 042
     Dates: start: 2013
  3. VITAMIN D3 WILD [Concomitant]
     Dosage: UNK

REACTIONS (4)
  - Eye pain [Unknown]
  - Iritis [Recovered/Resolved]
  - Photophobia [Unknown]
  - Eye inflammation [Unknown]

NARRATIVE: CASE EVENT DATE: 20130701
